FAERS Safety Report 5682281-X (Version None)
Quarter: 2008Q1

REPORT INFORMATION
  Report Type: 
  Country: None (occurrence: None)
  Receive Date: 20080327
  Receipt Date: 20080319
  Transmission Date: 20080703
  Serious: Yes (Other)
  Sender: FDA-Public Use
  Company Number: PHHY2008CA03547

PATIENT
  Age: 74 Year
  Sex: Female

DRUGS (6)
  1. ATENOLOL [Concomitant]
  2. SYNTHROID [Concomitant]
  3. HYDROCHLOROTHIAZIDE [Concomitant]
  4. ZANTAC [Concomitant]
  5. PANTOPRAZOLE SODIUM [Concomitant]
  6. RASILEZ [Suspect]
     Dosage: 150 MG, QD

REACTIONS (2)
  - CHEST PAIN [None]
  - MUSCULAR WEAKNESS [None]
